FAERS Safety Report 15075371 (Version 1)
Quarter: 2018Q2

REPORT INFORMATION
  Report Type: Spontaneous
  Country: US (occurrence: US)
  Receive Date: 20180627
  Receipt Date: 20180627
  Transmission Date: 20180711
  Serious: No
  Sender: FDA-Public Use
  Company Number: US-SAOL THERAPEUTICS-2018SAO00334

PATIENT

DRUGS (2)
  1. BACLOFEN. [Suspect]
     Active Substance: BACLOFEN
     Indication: MUSCLE SPASTICITY
     Dosage: 529 ?G, \DAY
     Route: 037
     Dates: end: 201709
  2. BACLOFEN. [Suspect]
     Active Substance: BACLOFEN
     Indication: CEREBROVASCULAR ACCIDENT
     Dosage: 559 ?G, \DAY
     Route: 037
     Dates: start: 201709

REACTIONS (2)
  - Device infusion issue [Unknown]
  - Muscle spasticity [Recovering/Resolving]

NARRATIVE: CASE EVENT DATE: 20171025
